FAERS Safety Report 14525710 (Version 1)
Quarter: 2018Q1

REPORT INFORMATION
  Report Type: Spontaneous
  Country: DK (occurrence: DK)
  Receive Date: 20180213
  Receipt Date: 20180213
  Transmission Date: 20180509
  Serious: Yes (Hospitalization)
  Sender: FDA-Public Use
  Company Number: DK-NOVOPROD-584473

PATIENT
  Age: 66 Year
  Sex: Female
  Weight: 96 kg

DRUGS (20)
  1. TOUJEO [Suspect]
     Active Substance: INSULIN GLARGINE
     Indication: TYPE 2 DIABETES MELLITUS
     Dosage: 64 IU, QD
     Route: 065
     Dates: start: 201703
  2. DOLOPHINE [Concomitant]
     Active Substance: METHADONE HYDROCHLORIDE
     Indication: BACK PAIN
     Dosage: 7?X3
     Route: 048
  3. AMITRIPTYLIN [Concomitant]
     Active Substance: AMITRIPTYLINE
     Indication: PROPHYLAXIS
  4. DIAZEPAM. [Concomitant]
     Active Substance: DIAZEPAM
     Indication: MUSCLE SPASMS
     Dosage: 2 MG, QD (P.N. LESS THAN 100/YEAR )
  5. POLICOSANOL [Concomitant]
  6. NOVORAPID [Suspect]
     Active Substance: INSULIN ASPART
     Dosage: 70 IU, QD
     Route: 065
     Dates: start: 201703
  7. AMITRIPTYLIN [Concomitant]
     Active Substance: AMITRIPTYLINE
     Indication: NEURALGIA
     Dosage: 25MGX2
     Route: 048
  8. ENTOCORT [Concomitant]
     Active Substance: BUDESONIDE
     Indication: COLITIS
     Dosage: 3 MG, UNK
     Route: 048
  9. BETMIGA [Concomitant]
     Active Substance: MIRABEGRON
     Indication: HYPOTONIC URINARY BLADDER
  10. MIANSERIN [Concomitant]
     Active Substance: MIANSERIN
     Indication: DEPRESSION
     Dosage: 300 MG, QD
     Route: 048
  11. FURIX [Concomitant]
     Active Substance: FUROSEMIDE
     Indication: PROPHYLAXIS
     Dosage: 80 MG, QD (80MGX1)
     Route: 048
  12. PANTOPRAZOLE [Concomitant]
     Active Substance: PANTOPRAZOLE
     Indication: GASTROOESOPHAGEAL REFLUX DISEASE
     Dosage: 200MGX4
     Route: 048
  13. NOVORAPID [Suspect]
     Active Substance: INSULIN ASPART
     Indication: TYPE 2 DIABETES MELLITUS
     Dosage: INJECTION 12+12+12+15+ APPROXIMATELY 28 IU NOCTURNAL
     Route: 065
     Dates: end: 201703
  14. BETMIGA [Concomitant]
     Active Substance: MIRABEGRON
     Indication: URETHRAL PAIN
  15. PANODIL [Concomitant]
     Active Substance: ACETAMINOPHEN
     Indication: BACK PAIN
     Dosage: 16X3
     Route: 048
  16. TRAMADOL. [Concomitant]
     Active Substance: TRAMADOL
     Indication: RHEUMATOID ARTHRITIS
     Dosage: 100 MG, QD (2X50MG^)
     Route: 048
  17. CIMZIA [Concomitant]
     Active Substance: CERTOLIZUMAB PEGOL
     Indication: RHEUMATOID ARTHRITIS
     Dosage: 200 MG  (EVERY 14. DAY)
  18. BETMIGA [Concomitant]
     Active Substance: MIRABEGRON
     Indication: SPINAL OPERATION
  19. FURIX [Concomitant]
     Active Substance: FUROSEMIDE
     Indication: NEURALGIA
  20. MIRTIN [Concomitant]
     Indication: DEPRESSION
     Dosage: 45 MG, QD
     Route: 048

REACTIONS (2)
  - Pneumonia [Unknown]
  - Delirium [Unknown]
